FAERS Safety Report 12760624 (Version 2)
Quarter: 2016Q4

REPORT INFORMATION
  Report Type: Report from Study
  Country: None (occurrence: US)
  Receive Date: 20160919
  Receipt Date: 20161130
  Transmission Date: 20170207
  Serious: Yes (Hospitalization)
  Sender: FDA-Public Use
  Company Number: US-ABBVIE-16K-163-1725362-00

PATIENT
  Sex: Female
  Weight: 81.72 kg

DRUGS (3)
  1. ABT [Concomitant]
     Indication: PRODUCT USED FOR UNKNOWN INDICATION
  2. CIPRO [Concomitant]
     Active Substance: CIPROFLOXACIN HYDROCHLORIDE
     Indication: PRODUCT USED FOR UNKNOWN INDICATION
     Dosage: ONE TABLET TWO TIMES
  3. HUMIRA [Suspect]
     Active Substance: ADALIMUMAB
     Indication: RHEUMATOID ARTHRITIS
     Route: 058
     Dates: start: 201502, end: 20160708

REACTIONS (2)
  - Foot deformity [Recovered/Resolved]
  - Wound infection staphylococcal [Unknown]

NARRATIVE: CASE EVENT DATE: 2016
